FAERS Safety Report 6857092-X (Version None)
Quarter: 2010Q3

REPORT INFORMATION
  Report Type: 
  Country: None (occurrence: None)
  Receive Date: 20100719
  Receipt Date: 20100709
  Transmission Date: 20110219
  Serious: Yes (Life-Threatening)
  Sender: FDA-Public Use
  Company Number: B0497947A

PATIENT
  Sex: Male
  Weight: 85 kg

DRUGS (12)
  1. PAXIL [Suspect]
     Indication: DEPRESSION
     Dosage: 50MG PER DAY
     Route: 048
     Dates: start: 20020101
  2. MEILAX [Concomitant]
     Indication: PANIC DISORDER
     Dosage: 2MG PER DAY
     Route: 048
     Dates: end: 20071224
  3. ANAFRANIL [Concomitant]
     Indication: DEPRESSION
     Dosage: 40MG PER DAY
     Route: 048
     Dates: start: 20070821, end: 20071126
  4. TETRAMIDE [Concomitant]
     Indication: DEPRESSION
     Dosage: 15MG PER DAY
     Route: 048
     Dates: end: 20071203
  5. EPADEL S [Concomitant]
     Dosage: 1200MG PER DAY
     Route: 048
     Dates: start: 20071120
  6. TOLEDOMIN [Concomitant]
     Indication: DEPRESSION
     Dosage: 45MG PER DAY
     Route: 048
     Dates: start: 20071127, end: 20080122
  7. LORAZEPAM [Concomitant]
     Indication: PANIC DISORDER
     Dosage: 1MG PER DAY
     Route: 048
     Dates: start: 20071211
  8. SEDIEL [Concomitant]
     Indication: ANXIETY
     Dosage: 20MG PER DAY
     Route: 048
     Dates: start: 20090430, end: 20100420
  9. METHYCOBAL [Concomitant]
     Indication: SLEEP DISORDER
     Dosage: 1500MCG PER DAY
     Dates: start: 20090130, end: 20100403
  10. MEVALOTIN [Concomitant]
     Dosage: 5MG PER DAY
     Route: 048
     Dates: start: 20090130, end: 20090924
  11. LOFEPRAMINE HYDROCHLORIDE [Concomitant]
     Indication: DEPRESSION
     Dosage: 50MG PER DAY
     Route: 048
     Dates: start: 20090130, end: 20090220
  12. IMIDOL [Concomitant]
     Indication: DEPRESSION
     Route: 048
     Dates: start: 20090130, end: 20100420

REACTIONS (8)
  - BLOOD CHOLESTEROL INCREASED [None]
  - BLOOD TRIGLYCERIDES INCREASED [None]
  - CORONARY ARTERY STENOSIS [None]
  - HEPATIC STEATOSIS [None]
  - HYPERLIPIDAEMIA [None]
  - MYOCARDIAL INFARCTION [None]
  - SOMNOLENCE [None]
  - URINARY RETENTION [None]
